FAERS Safety Report 4437867-7 (Version None)
Quarter: 2004Q3

REPORT INFORMATION
  Report Type: 
  Country: None (occurrence: None)
  Receive Date: 20040827
  Receipt Date: 20040818
  Transmission Date: 20050211
  Serious: Yes (Hospitalization)
  Sender: FDA-Public Use
  Company Number: FR-JNJFOC-20040703149

PATIENT
  Age: 10 Year
  Sex: Female

DRUGS (4)
  1. IBUPROFEN [Suspect]
     Indication: PHARYNGITIS
     Dosage: ^USUAL DOSES^
  2. IBUPROFEN [Suspect]
     Indication: PYREXIA
     Dosage: ^USUAL DOSES^
  3. OXATOMIDE [Concomitant]
  4. BETAMETHASONE [Concomitant]

REACTIONS (6)
  - ARTHRALGIA [None]
  - BIOPSY LIVER ABNORMAL [None]
  - CHEILITIS [None]
  - CHOLESTASIS [None]
  - STEVENS-JOHNSON SYNDROME [None]
  - VANISHING BILE DUCT SYNDROME [None]
